FAERS Safety Report 20046338 (Version 15)
Quarter: 2022Q2

REPORT INFORMATION
  Report Type: Report from Study
  Country: US (occurrence: US)
  Receive Date: 20211109
  Receipt Date: 20220620
  Transmission Date: 20220720
  Serious: Yes (Hospitalization, Other)
  Sender: FDA-Public Use
  Company Number: US-NOVARTISTESTPH-NVSC2021US253904

PATIENT
  Age: 71 Year
  Sex: Female
  Weight: 53.061 kg

DRUGS (11)
  1. TREPROSTINIL [Suspect]
     Active Substance: TREPROSTINIL
     Indication: Pulmonary arterial hypertension
     Dosage: 4 NG/KG/MIN, CONT
     Route: 042
     Dates: start: 20211027
  2. TREPROSTINIL [Suspect]
     Active Substance: TREPROSTINIL
     Dosage: 4 NG/KG/MIN, CONT
     Route: 042
  3. TREPROSTINIL [Suspect]
     Active Substance: TREPROSTINIL
     Dosage: 12 NG/KG/MIN, CONT
     Route: 042
  4. TREPROSTINIL [Suspect]
     Active Substance: TREPROSTINIL
     Dosage: 11 NG/KG/MIN, CONT
     Route: 042
  5. TREPROSTINIL [Suspect]
     Active Substance: TREPROSTINIL
     Dosage: 12 NG/KG/MIN, CONT
     Route: 042
  6. TREPROSTINIL [Suspect]
     Active Substance: TREPROSTINIL
     Dosage: 13 NG/KG/MIN. CONT
     Route: 042
  7. TREPROSTINIL [Suspect]
     Active Substance: TREPROSTINIL
     Dosage: 15 NG/KG/MIN, CONT
     Route: 042
  8. TREPROSTINIL [Suspect]
     Active Substance: TREPROSTINIL
     Dosage: 16 NG/KG/MIN, CONT
     Route: 042
  9. CHLORHEXIDINE [Suspect]
     Active Substance: CHLORHEXIDINE
     Indication: Product used for unknown indication
     Dosage: UNK
     Route: 065
  10. UPTRAVI [Concomitant]
     Active Substance: SELEXIPAG
     Indication: Product used for unknown indication
     Dosage: UNK
     Route: 065
  11. OPSUMIT [Concomitant]
     Active Substance: MACITENTAN
     Indication: Product used for unknown indication
     Dosage: UNK
     Route: 065

REACTIONS (18)
  - Atrial fibrillation [Unknown]
  - Haemoglobin decreased [Unknown]
  - Anaemia [Unknown]
  - Lower gastrointestinal haemorrhage [Unknown]
  - Haemorrhage [Unknown]
  - Gastric haemorrhage [Unknown]
  - Pneumonia [Unknown]
  - Dizziness [Unknown]
  - Thrombosis [Unknown]
  - Catheter site pain [Unknown]
  - Haemoptysis [Unknown]
  - Vomiting [Unknown]
  - Nausea [Unknown]
  - Diarrhoea [Unknown]
  - Headache [Unknown]
  - Pain in jaw [Unknown]
  - Infusion site pruritus [Unknown]
  - Drug intolerance [Unknown]

NARRATIVE: CASE EVENT DATE: 20211116
